FAERS Safety Report 9688622 (Version 1)
Quarter: 2013Q4

REPORT INFORMATION
  Report Type: Spontaneous
  Country: GB (occurrence: GB)
  Receive Date: 20131114
  Receipt Date: 20131114
  Transmission Date: 20140711
  Serious: Yes (Hospitalization)
  Sender: FDA-Public Use
  Company Number: GB-BRISTOL-MYERS SQUIBB COMPANY-19808625

PATIENT
  Age: 49 Year
  Sex: Male

DRUGS (8)
  1. METFORMIN HCL [Suspect]
  2. ACAMPROSATE [Suspect]
  3. ATORVASTATIN [Suspect]
  4. CITALOPRAM [Suspect]
  5. OMEPRAZOLE [Suspect]
  6. AMISULPRIDE [Suspect]
  7. ASPIRIN [Suspect]
  8. ZAPONEX [Suspect]
     Dosage: LAST DOSE: JUL2013
     Route: 048
     Dates: start: 20110802, end: 201307

REACTIONS (3)
  - Cardiovascular disorder [Unknown]
  - Hypoventilation [Recovering/Resolving]
  - Overdose [Recovered/Resolved with Sequelae]
